FAERS Safety Report 23873438 (Version 1)
Quarter: 2024Q2

REPORT INFORMATION
  Report Type: Spontaneous
  Country: US (occurrence: US)
  Receive Date: 20240520
  Receipt Date: 20240520
  Transmission Date: 20240716
  Serious: Yes (Hospitalization)
  Sender: FDA-Public Use
  Company Number: US-MYLANLABS-2024M1045051

PATIENT
  Age: 48 Year
  Sex: Male

DRUGS (14)
  1. CISPLATIN [Suspect]
     Active Substance: CISPLATIN
     Indication: Lung neoplasm
     Dosage: UNK
     Route: 065
     Dates: start: 2017
  2. ETOPOSIDE [Suspect]
     Active Substance: ETOPOSIDE
     Indication: Lung neoplasm
     Dosage: UNK
     Route: 065
     Dates: start: 2017
  3. BACLOFEN [Suspect]
     Active Substance: BACLOFEN
     Indication: Stiff person syndrome
     Dosage: 5 MILLIGRAM, QD
     Route: 065
  4. BACLOFEN [Suspect]
     Active Substance: BACLOFEN
     Indication: Paraneoplastic syndrome
  5. NIVOLUMAB [Suspect]
     Active Substance: NIVOLUMAB
     Indication: Carcinoid tumour pulmonary
     Dosage: UNK
     Route: 065
  6. NIVOLUMAB [Suspect]
     Active Substance: NIVOLUMAB
     Indication: Metastatic carcinoid tumour
  7. VOROLANIB [Suspect]
     Active Substance: VOROLANIB
     Indication: Carcinoid tumour pulmonary
     Dosage: UNK
     Route: 065
  8. VOROLANIB [Suspect]
     Active Substance: VOROLANIB
     Indication: Metastatic carcinoid tumour
  9. CYCLOBENZAPRINE [Suspect]
     Active Substance: CYCLOBENZAPRINE
     Indication: Stiff person syndrome
     Dosage: 10 MILLIGRAM; INTERVAL - ADMINISTERED THREE TIMES A DAY
     Route: 065
  10. CYCLOBENZAPRINE [Suspect]
     Active Substance: CYCLOBENZAPRINE
     Indication: Paraneoplastic syndrome
  11. METHYLPREDNISOLONE [Concomitant]
     Active Substance: METHYLPREDNISOLONE
     Indication: Stiff person syndrome
     Dosage: 1 GRAM, QD
     Route: 042
  12. METHYLPREDNISOLONE [Concomitant]
     Active Substance: METHYLPREDNISOLONE
     Indication: Paraneoplastic syndrome
  13. PREDNISONE [Concomitant]
     Active Substance: PREDNISONE
     Indication: Stiff person syndrome
     Dosage: 10 MILLIGRAM, BID (2MG/KG)
     Route: 042
  14. PREDNISONE [Concomitant]
     Active Substance: PREDNISONE
     Indication: Paraneoplastic syndrome

REACTIONS (2)
  - Drug ineffective [Unknown]
  - Off label use [Unknown]
